FAERS Safety Report 20993818 (Version 1)
Quarter: 2022Q2

REPORT INFORMATION
  Report Type: Spontaneous
  Country: JP (occurrence: JP)
  Receive Date: 20220622
  Receipt Date: 20220622
  Transmission Date: 20220721
  Serious: Yes (Hospitalization, Other)
  Sender: FDA-Public Use
  Company Number: JP-ANIPHARMA-2022-JP-000242

PATIENT
  Age: 97 Year
  Sex: Male
  Weight: 44 kg

DRUGS (9)
  1. CASODEX [Suspect]
     Active Substance: BICALUTAMIDE
     Indication: Prostate cancer
     Dosage: 80 MG QD
     Route: 048
     Dates: start: 20220415, end: 20220530
  2. URSODIOL [Concomitant]
     Active Substance: URSODIOL
     Route: 065
  3. ASPIRIN [Concomitant]
     Active Substance: ASPIRIN
     Route: 065
  4. LIMAPROST [Concomitant]
     Active Substance: LIMAPROST
     Route: 065
  5. ICOSAPENT [Concomitant]
     Active Substance: ICOSAPENT
     Route: 065
  6. HYDREA [Concomitant]
     Active Substance: HYDROXYUREA
     Route: 065
  7. MAGNESIUM OXIDE [Concomitant]
     Active Substance: MAGNESIUM OXIDE
     Route: 065
  8. ACETAMINOPHEN\TRAMADOL HYDROCHLORIDE [Concomitant]
     Active Substance: ACETAMINOPHEN\TRAMADOL HYDROCHLORIDE
     Route: 048
  9. TERIPARATIDE ACETATE [Concomitant]
     Active Substance: TERIPARATIDE ACETATE
     Route: 058

REACTIONS (4)
  - Hepatic function abnormal [Recovering/Resolving]
  - Infection [Unknown]
  - Metastases to bone [Unknown]
  - Pleural effusion [Recovering/Resolving]

NARRATIVE: CASE EVENT DATE: 20220513
